FAERS Safety Report 10222041 (Version 2)
Quarter: 2014Q2

REPORT INFORMATION
  Report Type: Report from Study
  Country: GB (occurrence: GB)
  Receive Date: 20140606
  Receipt Date: 20140606
  Transmission Date: 20141212
  Serious: Yes (Hospitalization)
  Sender: FDA-Public Use
  Company Number: GB-BIOMARINP-000242

PATIENT
  Age: 6 Year
  Sex: Female
  Weight: 16.99 kg

DRUGS (2)
  1. NAGLAZYME [Suspect]
     Indication: MUCOPOLYSACCHARIDOSIS VI
     Dosage: 1MG/KG,QW
     Route: 041
     Dates: start: 20060816
  2. NAGLAZYME [Suspect]
     Dosage: 20 MG/KG, QW
     Route: 041
     Dates: start: 20110519

REACTIONS (3)
  - Tonsillectomy [Recovered/Resolved]
  - Ear tube insertion [Recovered/Resolved]
  - Carpal tunnel decompression [Recovered/Resolved]
